FAERS Safety Report 7435972-4 (Version None)
Quarter: 2011Q2

REPORT INFORMATION
  Report Type: 
  Country: None (occurrence: None)
  Receive Date: 20110425
  Receipt Date: 20110416
  Transmission Date: 20111010
  Serious: Yes (Death, Hospitalization)
  Sender: FDA-Public Use
  Company Number: JP-AMGEN-JPNCT2011014851

PATIENT
  Age: 84 Year
  Sex: Male
  Weight: 64 kg

DRUGS (23)
  1. PANITUMUMAB [Suspect]
     Dosage: 5.63 MG/KG, Q2WK
     Route: 041
     Dates: start: 20101214, end: 20101214
  2. FLUOROURACIL [Suspect]
     Indication: COLORECTAL CANCER
     Route: 040
     Dates: start: 20100824, end: 20100824
  3. RINDERON-VG [Concomitant]
     Dosage: UNK
     Route: 062
  4. PANITUMUMAB [Suspect]
     Dosage: 5.94 MG/KG, Q2WK
     Route: 041
     Dates: start: 20100921, end: 20100921
  5. ISOVORIN [Suspect]
     Indication: COLORECTAL CANCER
     Route: 041
     Dates: start: 20100824, end: 20100824
  6. DECADRON [Concomitant]
     Dosage: UNK
     Route: 042
  7. GUAIAZULENE [Concomitant]
     Dosage: UNK
     Route: 065
  8. ELPLAT [Suspect]
     Indication: COLORECTAL CANCER
     Route: 041
     Dates: start: 20100824, end: 20100824
  9. FLUOROURACIL [Suspect]
     Route: 041
     Dates: start: 20100921
  10. PANITUMUMAB [Suspect]
     Dosage: 5.63 MG/KG, Q2WK
     Route: 041
     Dates: start: 20101019, end: 20101019
  11. PANITUMUMAB [Suspect]
     Dosage: 5.63 MG/KG, Q2WK
     Route: 041
     Dates: start: 20101118, end: 20101118
  12. FLUOROURACIL [Suspect]
     Route: 041
     Dates: start: 20100824, end: 20100824
  13. FLUOROURACIL [Suspect]
     Route: 040
     Dates: start: 20100921
  14. GOSHAJINKIGAN [Concomitant]
     Dosage: UNK
     Route: 048
  15. CELECOX [Concomitant]
     Dosage: UNK
     Route: 048
  16. PANITUMUMAB [Suspect]
     Dosage: 4.69 MG/KG, Q2WK
     Route: 041
     Dates: start: 20110111
  17. ELPLAT [Suspect]
     Route: 041
     Dates: start: 20100921
  18. ISOVORIN [Suspect]
     Route: 041
     Dates: start: 20100921
  19. METHYCOBAL [Concomitant]
     Dosage: UNK
     Route: 048
  20. KENALOG [Concomitant]
     Dosage: UNK
     Route: 049
  21. URSO 250 [Concomitant]
     Dosage: UNK
     Route: 048
  22. PANITUMUMAB [Suspect]
     Indication: COLORECTAL CANCER
     Dosage: 5.94 MG/KG, Q2WK
     Route: 041
     Dates: start: 20100824, end: 20100824
  23. CORTICOSTEROIDS [Concomitant]
     Indication: PROPHYLAXIS
     Dosage: UNK
     Route: 065

REACTIONS (5)
  - PARONYCHIA [None]
  - COLORECTAL CANCER [None]
  - THROMBOCYTOPENIA [None]
  - DERMATITIS ACNEIFORM [None]
  - STOMATITIS [None]
